FAERS Safety Report 16679194 (Version 3)
Quarter: 2019Q3

REPORT INFORMATION
  Report Type: Spontaneous
  Country: US (occurrence: US)
  Receive Date: 20190807
  Receipt Date: 20190916
  Transmission Date: 20191004
  Serious: Yes (Other)
  Sender: FDA-Public Use
  Company Number: US-BIOGEN-2019BI00770768

PATIENT
  Sex: Female

DRUGS (1)
  1. SPINRAZA [Suspect]
     Active Substance: NUSINERSEN
     Indication: SPINAL MUSCULAR ATROPHY
     Route: 037
     Dates: start: 20180320

REACTIONS (4)
  - Feeling guilty [Unknown]
  - Ulna fracture [Not Recovered/Not Resolved]
  - Hypoaesthesia [Unknown]
  - Road traffic accident [Recovered/Resolved]
